FAERS Safety Report 6637720-4 (Version None)
Quarter: 2010Q1

REPORT INFORMATION
  Report Type: 
  Country: None (occurrence: None)
  Receive Date: 20100315
  Receipt Date: 20100315
  Transmission Date: 20100710
  Serious: Yes (Other)
  Sender: FDA-Public Use
  Company Number: None

PATIENT
  Age: 26 Year
  Sex: Male
  Weight: 68.0396 kg

DRUGS (5)
  1. NEXIUM [Suspect]
     Indication: DYSPEPSIA
     Dosage: 1 CAPSULE DAILY PO
     Route: 048
     Dates: start: 20100126, end: 20100129
  2. NEXIUM [Suspect]
     Indication: DYSPNOEA
     Dosage: 1 CAPSULE DAILY PO
     Route: 048
     Dates: start: 20100126, end: 20100129
  3. NEXIUM [Suspect]
     Indication: HEART RATE IRREGULAR
     Dosage: 1 CAPSULE DAILY PO
     Route: 048
     Dates: start: 20100126, end: 20100129
  4. NEXIUM [Suspect]
     Indication: PALPITATIONS
     Dosage: 1 CAPSULE DAILY PO
     Route: 048
     Dates: start: 20100126, end: 20100129
  5. NEXIUM [Suspect]
     Indication: SLEEP DISORDER
     Dosage: 1 CAPSULE DAILY PO
     Route: 048
     Dates: start: 20100126, end: 20100129

REACTIONS (1)
  - EPISTAXIS [None]
